FAERS Safety Report 7790514-9 (Version None)
Quarter: 2011Q3

REPORT INFORMATION
  Report Type: 
  Country: None (occurrence: None)
  Receive Date: 20110930
  Receipt Date: 20110920
  Transmission Date: 20111222
  Serious: Yes (Other)
  Sender: FDA-Public Use
  Company Number: PHHY2011JP83915

PATIENT
  Age: 73 Year
  Sex: Female

DRUGS (8)
  1. PRAVASTATIN SODIUM [Concomitant]
     Dosage: 1 DF, UNK
     Route: 048
  2. SENNOSIDE [Concomitant]
     Dosage: 12 MG, UNK
     Route: 048
  3. LANSOPRAZOLE [Concomitant]
     Dosage: 1 DF, UNK
     Route: 048
  4. MAGMITT [Concomitant]
     Dosage: 1000 MG, UNK
     Route: 048
  5. FAMVIR [Suspect]
     Indication: HERPES ZOSTER
     Dosage: 500 MG, QD
     Route: 048
     Dates: start: 20110826, end: 20110826
  6. CARVEDILOL [Concomitant]
     Dosage: 10 MG, UNK
     Route: 048
  7. ALPRAZOLAM [Concomitant]
     Dosage: 1.2 MG, UNK
     Route: 048
  8. METHYCOBAL [Concomitant]
     Dosage: 2 DF, UNK
     Route: 048

REACTIONS (5)
  - DYSPNOEA [None]
  - CHEST DISCOMFORT [None]
  - HEADACHE [None]
  - ASTHENIA [None]
  - PALPITATIONS [None]
